FAERS Safety Report 16055991 (Version 1)
Quarter: 2019Q2

REPORT INFORMATION
  Report Type: Spontaneous
  Country: US (occurrence: US)
  Receive Date: 20190308
  Receipt Date: 20190308
  Transmission Date: 20190711
  Serious: Yes (Life-Threatening)
  Sender: FDA-Public Use
  Company Number: None

PATIENT
  Age: 39 Year
  Sex: Female
  Weight: 62.1 kg

DRUGS (1)
  1. NATURE-THROID [Suspect]
     Active Substance: THYROID, PORCINE
     Indication: HYPOTHYROIDISM
     Dosage: ?          QUANTITY:0.5 TABLET(S);?
     Route: 048
     Dates: start: 20190205, end: 20190220

REACTIONS (12)
  - Chest pain [None]
  - Eye pain [None]
  - Headache [None]
  - Muscular weakness [None]
  - Pharyngeal hypoaesthesia [None]
  - Hypoaesthesia [None]
  - Migraine [None]
  - Product availability issue [None]
  - Heart rate increased [None]
  - Head discomfort [None]
  - Blood pressure increased [None]
  - Musculoskeletal pain [None]

NARRATIVE: CASE EVENT DATE: 20190217
